FAERS Safety Report 21838371 (Version 1)
Quarter: 2023Q1

REPORT INFORMATION
  Report Type: Spontaneous
  Country: US (occurrence: US)
  Receive Date: 20230109
  Receipt Date: 20230109
  Transmission Date: 20230417
  Serious: Yes (Other)
  Sender: FDA-Public Use
  Company Number: US-SA-2023SA003813

PATIENT
  Age: 15 Year
  Sex: Male
  Weight: 56 kg

DRUGS (1)
  1. DIPHENHYDRAMINE [Suspect]
     Active Substance: DIPHENHYDRAMINE
     Dosage: 12.5 MG/5 ML, 8-OZ BOTTLE, 1X
     Route: 048

REACTIONS (5)
  - Delirium [Unknown]
  - Hallucination [Unknown]
  - Intentional overdose [Unknown]
  - Mydriasis [Unknown]
  - Flushing [Unknown]
